FAERS Safety Report 5410516-7 (Version None)
Quarter: 2007Q3

REPORT INFORMATION
  Report Type: 
  Country: None (occurrence: None)
  Receive Date: 20070810
  Receipt Date: 20070207
  Transmission Date: 20080115
  Serious: No
  Sender: FDA-Public Use
  Company Number: A0638740A

PATIENT
  Age: 79 Year
  Sex: Female

DRUGS (2)
  1. PAXIL [Suspect]
     Dosage: 20MG PER DAY
     Route: 048
     Dates: start: 20020101
  2. ATIVAN [Concomitant]

REACTIONS (2)
  - ABNORMAL DREAMS [None]
  - FATIGUE [None]
